FAERS Safety Report 20923025 (Version 2)
Quarter: 2022Q2

REPORT INFORMATION
  Report Type: Other
  Country: RU (occurrence: RU)
  Receive Date: 20220607
  Receipt Date: 20220616
  Transmission Date: 20220721
  Serious: Yes (Hospitalization, Other)
  Sender: FDA-Public Use
  Company Number: None

PATIENT
  Age: 4 Year
  Sex: Male

DRUGS (14)
  1. ALTEPLASE [Suspect]
     Active Substance: ALTEPLASE
     Indication: Acute coronary syndrome
     Dosage: LOADING DOSE OF A BOLUS
     Route: 040
  2. ALTEPLASE [Suspect]
     Active Substance: ALTEPLASE
     Indication: Kawasaki^s disease
     Dosage: REMAINING WAS ADMINISTERED FOR 1 HOUR
     Route: 040
  3. HEPARIN SODIUM [Suspect]
     Active Substance: HEPARIN SODIUM
     Indication: Kawasaki^s disease
     Dosage: 25 U/KG/H
     Route: 065
  4. HEPARIN SODIUM [Suspect]
     Active Substance: HEPARIN SODIUM
     Indication: Acute coronary syndrome
     Dosage: 25 U/KG/H
     Route: 065
  5. HEPARIN SODIUM [Suspect]
     Active Substance: HEPARIN SODIUM
     Indication: Kawasaki^s disease
     Dosage: HEPARIN INFUSION AT A DOSE OF 10 U/KG/H IN PARALLEL ACTILYSE
     Route: 042
  6. ASPIRIN [Concomitant]
     Active Substance: ASPIRIN
     Indication: Kawasaki^s disease
  7. ASPIRIN [Concomitant]
     Active Substance: ASPIRIN
     Indication: Coronary artery aneurysm
  8. CAPTOPRIL [Concomitant]
     Active Substance: CAPTOPRIL
     Indication: Kawasaki^s disease
  9. CAPTOPRIL [Concomitant]
     Active Substance: CAPTOPRIL
     Indication: Coronary artery aneurysm
  10. MORPHINE [Concomitant]
     Active Substance: MORPHINE
     Indication: Acute coronary syndrome
     Dosage: 0.03 MICROG/KG/H
     Route: 065
  11. NITROGLYCERIN [Concomitant]
     Active Substance: NITROGLYCERIN
     Indication: Acute coronary syndrome
     Dosage: 0.7 MICROG/KG/MIN
     Route: 065
  12. METOPROLOL [Concomitant]
     Active Substance: METOPROLOL
     Indication: Product used for unknown indication
  13. SPIRONOLACTONE [Concomitant]
     Active Substance: SPIRONOLACTONE
     Indication: Drug therapy
  14. SPIRONOLACTONE [Concomitant]
     Active Substance: SPIRONOLACTONE
     Indication: Diuretic therapy

REACTIONS (3)
  - Coronary artery aneurysm [Not Recovered/Not Resolved]
  - Off label use [Unknown]
  - Epistaxis [Recovered/Resolved]
